FAERS Safety Report 8580453-8 (Version None)
Quarter: 2012Q3

REPORT INFORMATION
  Report Type: 
  Country: None (occurrence: None)
  Receive Date: 20120808
  Receipt Date: 19881107
  Transmission Date: 20120928
  Serious: Yes (Other)
  Sender: FDA-Public Use
  Company Number: US-ROCHE-1098811

PATIENT
  Age: 42 Year
  Sex: Female

DRUGS (9)
  1. MORPHINE [Concomitant]
  2. NITROGLYCERIN INFUSION [Concomitant]
  3. HEPARIN [Concomitant]
  4. SODIUM CHLORIDE [Concomitant]
  5. ACTIVASE [Suspect]
     Dosage: 90MG/90CC
     Route: 042
  6. LIDOCAINE [Concomitant]
  7. LOPRESSOR [Concomitant]
  8. NUBAIN [Concomitant]
  9. ACTIVASE [Suspect]
     Indication: ACUTE MYOCARDIAL INFARCTION
     Route: 040

REACTIONS (3)
  - CHEST PAIN [None]
  - ELECTROCARDIOGRAM ST SEGMENT ELEVATION [None]
  - PAIN [None]
